FAERS Safety Report 21766203 (Version 1)
Quarter: 2022Q4

REPORT INFORMATION
  Report Type: Spontaneous
  Country: US (occurrence: US)
  Receive Date: 20221222
  Receipt Date: 20221222
  Transmission Date: 20230113
  Serious: Yes (Hospitalization, Other)
  Sender: FDA-Public Use
  Company Number: US-BRISTOL-MYERS SQUIBB COMPANY-2022-153521

PATIENT
  Age: 15 Year
  Sex: Female
  Weight: 49.9 kg

DRUGS (30)
  1. APIXABAN [Suspect]
     Active Substance: APIXABAN
     Indication: Pulmonary thrombosis
     Route: 048
     Dates: start: 20220323, end: 20220926
  2. REMODULIN [Suspect]
     Active Substance: TREPROSTINIL
     Indication: Pulmonary arterial hypertension
     Dosage: CONTINUING (AT A RATE OF 0.046 ML/HOUR)
     Route: 058
     Dates: start: 20180817
  3. REMODULIN [Suspect]
     Active Substance: TREPROSTINIL
     Indication: Pulmonary hypertension
     Dosage: CONTINUING
     Route: 058
  4. REMODULIN [Suspect]
     Active Substance: TREPROSTINIL
     Dosage: CONTINUING (AT A PUMP RATE OF 0.040ML/HR)
     Route: 058
     Dates: start: 20220322
  5. XARELTO [Suspect]
     Active Substance: RIVAROXABAN
     Indication: Product used for unknown indication
  6. AMOXICILLIN TRIHYDRATE [Concomitant]
     Active Substance: AMOXICILLIN
     Indication: Product used for unknown indication
     Dates: start: 20200929
  7. OPSUMIT [Concomitant]
     Active Substance: MACITENTAN
     Indication: Product used for unknown indication
     Dates: start: 20210930, end: 20220831
  8. TADALAFIL [Concomitant]
     Active Substance: TADALAFIL
     Indication: Product used for unknown indication
     Dates: start: 20220413
  9. ADCIRCA [Concomitant]
     Active Substance: TADALAFIL
     Indication: Product used for unknown indication
  10. ADVAIR HFA [Concomitant]
     Active Substance: FLUTICASONE PROPIONATE\SALMETEROL XINAFOATE
     Indication: Product used for unknown indication
     Dosage: 230-21 MCG
     Dates: start: 20220416
  11. PREDNISONE [Concomitant]
     Active Substance: PREDNISONE
     Indication: Product used for unknown indication
     Dates: start: 20220519
  12. PREDNISONE [Concomitant]
     Active Substance: PREDNISONE
     Dates: start: 20220701, end: 20220803
  13. PREDNISONE [Concomitant]
     Active Substance: PREDNISONE
     Dates: end: 20220707
  14. XOLAIR [Concomitant]
     Active Substance: OMALIZUMAB
     Indication: Product used for unknown indication
     Dates: start: 20220415
  15. FAMOTIDINE [Concomitant]
     Active Substance: FAMOTIDINE
     Indication: Product used for unknown indication
     Dates: start: 20220413, end: 20220818
  16. LACTOBACILLUS ACIDOPHILUS [Concomitant]
     Active Substance: LACTOBACILLUS ACIDOPHILUS
     Indication: Product used for unknown indication
     Dates: start: 20210818
  17. GABAPENTIN [Concomitant]
     Active Substance: GABAPENTIN
     Indication: Product used for unknown indication
     Dates: start: 20220106, end: 20220803
  18. BUPROPION HYDROCHLORIDE XL [Concomitant]
     Active Substance: BUPROPION HYDROCHLORIDE
     Indication: Product used for unknown indication
  19. ALBUTEROL SULFATE [Concomitant]
     Active Substance: ALBUTEROL SULFATE
     Indication: Product used for unknown indication
     Dates: start: 20220106
  20. BIOTIN [Concomitant]
     Active Substance: BIOTIN
     Indication: Product used for unknown indication
     Dates: start: 20210413
  21. FERRIC POLYSACCHARIDE COMPLEX [Concomitant]
     Active Substance: FERRIC POLYSACCHARIDE COMPLEX
     Indication: Product used for unknown indication
     Dates: start: 20220607, end: 20220803
  22. CAFFEINE [Concomitant]
     Active Substance: CAFFEINE
     Indication: Product used for unknown indication
     Dates: start: 20210413
  23. VITAMIN D3 [Concomitant]
     Active Substance: CHOLECALCIFEROL
     Indication: Product used for unknown indication
     Dates: start: 20220613
  24. EPINEPHRINE HYDROCHLORIDE [Concomitant]
     Active Substance: EPINEPHRINE HYDROCHLORIDE
     Indication: Product used for unknown indication
     Dates: start: 20220421
  25. NORETHINDRONE ACETATE [Concomitant]
     Active Substance: NORETHINDRONE ACETATE
     Indication: Product used for unknown indication
     Dates: start: 20210806, end: 20220803
  26. METHIMAZOLE [Concomitant]
     Active Substance: METHIMAZOLE
     Indication: Product used for unknown indication
  27. MACITENTAN [Concomitant]
     Active Substance: MACITENTAN
     Indication: Product used for unknown indication
  28. TREPROSTINIL [Concomitant]
     Active Substance: TREPROSTINIL
     Indication: Product used for unknown indication
     Route: 058
  29. ACETAMINOPHEN [Concomitant]
     Active Substance: ACETAMINOPHEN
     Indication: Product used for unknown indication
  30. BUPROPION [Concomitant]
     Active Substance: BUPROPION
     Indication: Product used for unknown indication

REACTIONS (1)
  - Uterine haemorrhage [Not Recovered/Not Resolved]

NARRATIVE: CASE EVENT DATE: 20220701
